FAERS Safety Report 12490215 (Version 4)
Quarter: 2016Q3

REPORT INFORMATION
  Report Type: Spontaneous
  Country: US (occurrence: US)
  Receive Date: 20160622
  Receipt Date: 20160810
  Transmission Date: 20161109
  Serious: Yes (Life-Threatening, Hospitalization, Other)
  Sender: FDA-Public Use
  Company Number: US-PFIZER INC-3234418

PATIENT
  Age: 60 Year
  Sex: Female

DRUGS (2)
  1. CILASTATIN/IMIPENEM [Suspect]
     Active Substance: CILASTATIN SODIUM\IMIPENEM
     Dosage: 500 MG, FOR 1 HOUR (EVERY 6 HRS)
     Dates: start: 20150806
  2. AMPICILLIN AND SULBACTAM [Concomitant]
     Active Substance: AMPICILLIN SODIUM\SULBACTAM SODIUM
     Indication: EVIDENCE BASED TREATMENT
     Dosage: 3 G, FOR 1 HOUR (EVERY 6 HRS)
     Route: 042

REACTIONS (3)
  - Respiratory failure [None]
  - Eosinophilic pneumonia acute [Recovering/Resolving]
  - Acute respiratory distress syndrome [None]

NARRATIVE: CASE EVENT DATE: 20150807
